FAERS Safety Report 14508628 (Version 3)
Quarter: 2018Q3

REPORT INFORMATION
  Report Type: Report from Study
  Country: CA (occurrence: CA)
  Receive Date: 20180209
  Receipt Date: 20180904
  Transmission Date: 20181010
  Serious: Yes (Other)
  Sender: FDA-Public Use
  Company Number: CA-BRISTOL-MYERS SQUIBB COMPANY-BMS-2018-009129

PATIENT
  Sex: Female

DRUGS (1)
  1. ABATACEPT [Suspect]
     Active Substance: ABATACEPT
     Indication: RHEUMATOID ARTHRITIS
     Dosage: 750 MG, Q4WK
     Route: 042
     Dates: start: 20160407, end: 20180827

REACTIONS (8)
  - Polyp [Unknown]
  - Hypoaesthesia [Unknown]
  - Arthropathy [Unknown]
  - Diarrhoea [Unknown]
  - Fall [Unknown]
  - Paraesthesia [Unknown]
  - Influenza [Unknown]
  - Back pain [Unknown]
